FAERS Safety Report 9582431 (Version 1)
Quarter: 2013Q4

REPORT INFORMATION
  Report Type: Spontaneous
  Country: US (occurrence: US)
  Receive Date: 20131002
  Receipt Date: 20131002
  Transmission Date: 20140711
  Serious: No
  Sender: FDA-Public Use
  Company Number: US-AMGEN-USASP2013040544

PATIENT
  Age: 76 Year
  Sex: Female
  Weight: 90.7 kg

DRUGS (10)
  1. ENBREL [Suspect]
     Indication: PRODUCT USED FOR UNKNOWN INDICATION
     Dosage: 50 MG, QWK
     Route: 058
  2. ATENOLOL [Concomitant]
     Dosage: 100 MG, UNK
  3. SYNTHROID [Concomitant]
     Dosage: 100 MUG, UNK
  4. ENALAPRIL [Concomitant]
     Dosage: 2.5 MG, UNK
  5. ADVIL                              /00044201/ [Concomitant]
     Dosage: 200 MG, UNK
  6. OCUVITE                            /01053801/ [Concomitant]
     Dosage: UNK
  7. MULTIVITAMINS, PLAIN [Concomitant]
     Dosage: UNK
  8. COLCRYS [Concomitant]
     Dosage: 0.6 MG, UNK
  9. CALCIUM [Concomitant]
     Dosage: 500, UNK
  10. VITAMIN B COMPLEX [Concomitant]
     Dosage: UNK

REACTIONS (5)
  - Lacrimation increased [Unknown]
  - Vitreous floaters [Unknown]
  - Dizziness [Unknown]
  - Sensitivity to weather change [Unknown]
  - Exostosis [Unknown]
